FAERS Safety Report 11787865 (Version 1)
Quarter: 2015Q4

REPORT INFORMATION
  Report Type: Spontaneous
  Country: US (occurrence: US)
  Receive Date: 20151130
  Receipt Date: 20151130
  Transmission Date: 20160305
  Serious: Yes (Other)
  Sender: FDA-Public Use
  Company Number: GXBR2015US000777

PATIENT
  Age: 59 Year
  Sex: Female
  Weight: 49.43 kg

DRUGS (4)
  1. PREDNISONE. [Concomitant]
     Active Substance: PREDNISONE
     Indication: PRODUCT USED FOR UNKNOWN INDICATION
     Dosage: 2 MG, QOD
     Route: 065
  2. HYDROXYCHLOROQUINE SULFATE TABLETS USP [Suspect]
     Active Substance: HYDROXYCHLOROQUINE SULFATE
     Indication: SYSTEMIC LUPUS ERYTHEMATOSUS
     Dosage: 200 MG, QD
     Route: 065
     Dates: start: 201411, end: 20150114
  3. MULTI VITAMIN [Concomitant]
     Active Substance: VITAMINS
     Indication: VITAMIN SUPPLEMENTATION
     Dosage: UNK DF, UNK
     Route: 065
  4. CALCIUM [Concomitant]
     Active Substance: CALCIUM
     Indication: SUPPLEMENTATION THERAPY
     Dosage: UNK DF, UNK
     Route: 065

REACTIONS (10)
  - Weight decreased [Recovering/Resolving]
  - Lymphadenopathy [Not Recovered/Not Resolved]
  - Wound [Recovering/Resolving]
  - Oral pain [Recovering/Resolving]
  - Lichenification [Unknown]
  - Feeding disorder [Not Recovered/Not Resolved]
  - Ageusia [Recovering/Resolving]
  - Dysphonia [Recovering/Resolving]
  - Stomatitis [Recovering/Resolving]
  - Scab [Recovering/Resolving]

NARRATIVE: CASE EVENT DATE: 201411
